FAERS Safety Report 6228397-0 (Version None)
Quarter: 2009Q2

REPORT INFORMATION
  Report Type: 
  Country: None (occurrence: None)
  Receive Date: 20090612
  Receipt Date: 20090608
  Transmission Date: 20091009
  Serious: Yes (Life-Threatening, Hospitalization, Other)
  Sender: FDA-Public Use
  Company Number: US-ROXANE LABORATORIES, INC.-2009-RO-00563RO

PATIENT
  Age: 6 Year
  Sex: Male

DRUGS (13)
  1. LEVETIRACETAM [Suspect]
     Indication: CONVULSION
     Dosage: 680MG
     Route: 048
  2. DIAZEPAM [Suspect]
     Indication: PAIN
  3. LORAZEPAM [Suspect]
     Indication: CONVULSION
  4. ACETAMINOPHEN [Suspect]
     Indication: PAIN
  5. PHENYTOIN [Suspect]
     Indication: CONVULSION
  6. VALPROIC ACID SYRUP [Suspect]
     Indication: CONVULSION
  7. CEFTRIAXONE [Suspect]
     Indication: INFECTION PROPHYLAXIS
  8. EPINEPHRINE [Suspect]
     Indication: CARDIAC ARREST
  9. NOREPINEPHRINE BITARTRATE [Suspect]
     Indication: CARDIAC ARREST
  10. PHENYLEPHRINE [Suspect]
     Indication: CARDIAC ARREST
  11. STEROIDS [Suspect]
     Indication: CARDIAC ARREST
  12. PYRIDOXINE [Concomitant]
     Indication: DELIRIUM
     Dosage: 50MG
     Route: 048
  13. PYRIDOXINE [Concomitant]
     Indication: ADVERSE DRUG REACTION

REACTIONS (7)
  - ABNORMAL BEHAVIOUR [None]
  - ADVERSE DRUG REACTION [None]
  - CARDIAC ARREST [None]
  - CONVULSION [None]
  - CSF PROTEIN INCREASED [None]
  - DELIRIUM [None]
  - EMBOLIC CEREBRAL INFARCTION [None]
